FAERS Safety Report 5406912-4 (Version None)
Quarter: 2007Q3

REPORT INFORMATION
  Report Type: 
  Country: None (occurrence: None)
  Receive Date: 20070802
  Receipt Date: 20070723
  Transmission Date: 20080115
  Serious: Yes (Hospitalization)
  Sender: FDA-Public Use
  Company Number: B0481367A

PATIENT

DRUGS (3)
  1. LITHIUM SALT (FORMULATION UNKNOWN) (GENERIC) (LITHIUM SALT) [Suspect]
     Indication: BIPOLAR DISORDER
  2. ACE INHIBITOR [Concomitant]
  3. ANTIRHEUMATIC MEDICATION [Concomitant]

REACTIONS (8)
  - ATRIOVENTRICULAR BLOCK COMPLETE [None]
  - BRADYCARDIA [None]
  - DEHYDRATION [None]
  - DRUG TOXICITY [None]
  - RENAL FAILURE [None]
  - RESTLESSNESS [None]
  - TREMOR [None]
  - UNDERDOSE [None]
